FAERS Safety Report 7903286-1 (Version None)
Quarter: 2011Q4

REPORT INFORMATION
  Report Type: 
  Country: None (occurrence: None)
  Receive Date: 20111107
  Receipt Date: 20111031
  Transmission Date: 20120403
  Serious: Yes (Hospitalization, Other)
  Sender: FDA-Public Use
  Company Number: 2011SP014624

PATIENT
  Age: 40 Year
  Sex: Female
  Weight: 63.05 kg

DRUGS (1)
  1. NUVARING [Suspect]
     Indication: MENSTRUAL DISORDER
     Dates: start: 20090101, end: 20090301

REACTIONS (4)
  - DEPRESSION [None]
  - PULMONARY EMBOLISM [None]
  - HEADACHE [None]
  - MUSCLE SPASMS [None]
